FAERS Safety Report 19505617 (Version 1)
Quarter: 2021Q3

REPORT INFORMATION
  Report Type: Spontaneous
  Country: US (occurrence: US)
  Receive Date: 20210706
  Receipt Date: 20210706
  Transmission Date: 20211014
  Serious: Yes (Hospitalization)
  Sender: FDA-Public Use
  Company Number: None

PATIENT
  Age: 65 Year
  Sex: Male
  Weight: 86.2 kg

DRUGS (1)
  1. CISPLATIN. [Suspect]
     Active Substance: CISPLATIN
     Dates: end: 20210524

REACTIONS (7)
  - Hypoglycaemia [None]
  - Vision blurred [None]
  - Acute kidney injury [None]
  - Hemiparesis [None]
  - Lymphadenopathy [None]
  - Dysphagia [None]
  - Dehydration [None]

NARRATIVE: CASE EVENT DATE: 20210621
